FAERS Safety Report 24417248 (Version 1)
Quarter: 2024Q4

REPORT INFORMATION
  Report Type: Spontaneous
  Country: JP (occurrence: JP)
  Receive Date: 20241009
  Receipt Date: 20241009
  Transmission Date: 20250114
  Serious: Yes (Life-Threatening, Hospitalization, Other)
  Sender: GLAND PHARMA
  Company Number: JP-GLANDPHARMA-JP-2024GLNLIT00821

PATIENT
  Age: 50 Year
  Sex: Male

DRUGS (3)
  1. CISPLATIN [Suspect]
     Active Substance: CISPLATIN
     Indication: Small cell lung cancer metastatic
     Route: 065
     Dates: start: 202101
  2. ETOPOSIDE [Suspect]
     Active Substance: ETOPOSIDE
     Indication: Small cell lung cancer metastatic
     Route: 065
  3. DURVALUMAB [Suspect]
     Active Substance: DURVALUMAB
     Indication: Small cell lung cancer
     Dosage: 1500 MG/BODY
     Route: 065

REACTIONS (4)
  - Febrile neutropenia [Recovering/Resolving]
  - COVID-19 pneumonia [Recovering/Resolving]
  - Interstitial lung disease [Recovering/Resolving]
  - Product used for unknown indication [Unknown]
